FAERS Safety Report 5353530-2 (Version None)
Quarter: 2007Q2

REPORT INFORMATION
  Report Type: 
  Country: None (occurrence: None)
  Receive Date: 20070608
  Receipt Date: 20070608
  Transmission Date: 20071010
  Serious: Yes (Other)
  Sender: FDA-Public Use
  Company Number: None

PATIENT
  Age: 49 Year
  Sex: Male
  Weight: 81.6475 kg

DRUGS (2)
  1. ACTOS [Suspect]
     Indication: DIABETES MELLITUS NON-INSULIN-DEPENDENT
     Dosage: 1 DAILY PO
     Route: 048
     Dates: start: 20060606, end: 20060620
  2. AVANDIA [Suspect]
     Indication: DIABETES MELLITUS NON-INSULIN-DEPENDENT
     Dosage: 1 DAILY PO
     Route: 048
     Dates: start: 20060717, end: 20070421

REACTIONS (3)
  - DRUG INEFFECTIVE [None]
  - RENAL PAIN [None]
  - VISION BLURRED [None]
